FAERS Safety Report 15684743 (Version 3)
Quarter: 2019Q2

REPORT INFORMATION
  Report Type: Report from Study
  Country: JP (occurrence: JP)
  Receive Date: 20181204
  Receipt Date: 20190426
  Transmission Date: 20190711
  Serious: Yes (Death)
  Sender: FDA-Public Use
  Company Number: IN-ASTRAZENECA-2018SF58094

PATIENT
  Age: 28105 Day
  Sex: Male
  Weight: 74 kg

DRUGS (4)
  1. INSULIN GLARGINE BS[BIOSIMILAR 1] [Concomitant]
     Active Substance: INSULIN GLARGINE
     Indication: TYPE 2 DIABETES MELLITUS
  2. HUMALOG [Concomitant]
     Active Substance: INSULIN LISPRO
     Indication: TYPE 2 DIABETES MELLITUS
  3. DAPAGLIFLOZIN. [Suspect]
     Active Substance: DAPAGLIFLOZIN
     Indication: TYPE 2 DIABETES MELLITUS
     Route: 048
     Dates: start: 20151126, end: 20180301
  4. JANUVIA [Concomitant]
     Active Substance: SITAGLIPTIN PHOSPHATE
     Indication: TYPE 2 DIABETES MELLITUS
     Route: 048
     Dates: start: 20151208

REACTIONS (2)
  - Pneumonia [Fatal]
  - Cerebral infarction [Fatal]

NARRATIVE: CASE EVENT DATE: 20180301
